FAERS Safety Report 4426867-9 (Version None)
Quarter: 2004Q3

REPORT INFORMATION
  Report Type: 
  Country: None (occurrence: None)
  Receive Date: 20040811
  Receipt Date: 20040722
  Transmission Date: 20050211
  Serious: Yes (Death)
  Sender: FDA-Public Use
  Company Number: FR_040704490

PATIENT
  Age: 49 Year
  Sex: Male

DRUGS (5)
  1. PROZAC [Suspect]
     Dates: start: 20030903, end: 20030903
  2. TERCIAN (CYAMEMAZINE) [Concomitant]
  3. THERALENE (ALIMEMAZINE TARTRATE) [Concomitant]
  4. BROMAZEPAM [Concomitant]
  5. SEROPRAM (CITALOPRAM HYDROBROMIDE) [Concomitant]

REACTIONS (6)
  - DRUG ABUSER [None]
  - DRUG TOXICITY [None]
  - GASTRODUODENITIS [None]
  - OESOPHAGEAL ULCER [None]
  - PETECHIAE [None]
  - PULMONARY OEDEMA [None]
